FAERS Safety Report 11545899 (Version 1)
Quarter: 2015Q3

REPORT INFORMATION
  Report Type: Spontaneous
  Country: US (occurrence: US)
  Receive Date: 20150924
  Receipt Date: 20150924
  Transmission Date: 20151125
  Serious: Yes (Hospitalization, Other)
  Sender: FDA-Public Use
  Company Number: US-GLAXOSMITHKLINE-US2015134377

PATIENT
  Age: 77 Year
  Sex: Male

DRUGS (8)
  1. MUCINEX [Concomitant]
     Active Substance: GUAIFENESIN
  2. ADVAIR DISKUS [Suspect]
     Active Substance: FLUTICASONE PROPIONATE\SALMETEROL XINAFOATE
     Indication: CHRONIC OBSTRUCTIVE PULMONARY DISEASE
     Dosage: 1 PUFF(S), BID
     Route: 055
     Dates: start: 2005
  3. TRANDOLAPRIL. [Concomitant]
     Active Substance: TRANDOLAPRIL
  4. LASIX [Concomitant]
     Active Substance: FUROSEMIDE
  5. CITALOPRAM [Concomitant]
     Active Substance: CITALOPRAM HYDROBROMIDE
  6. NITROSTAT [Concomitant]
     Active Substance: NITROGLYCERIN
  7. METOPROLOL [Concomitant]
     Active Substance: METOPROLOL
  8. SIMVASTATIN. [Concomitant]
     Active Substance: SIMVASTATIN

REACTIONS (4)
  - Cardiac failure [Unknown]
  - Pneumonia [Recovering/Resolving]
  - Malaise [Unknown]
  - Implantable defibrillator insertion [Recovering/Resolving]

NARRATIVE: CASE EVENT DATE: 2006
